FAERS Safety Report 5077731-6 (Version None)
Quarter: 2006Q3

REPORT INFORMATION
  Report Type: 
  Country: None (occurrence: None)
  Receive Date: 20060810
  Receipt Date: 20060801
  Transmission Date: 20061208
  Serious: Yes (Other)
  Sender: FDA-Public Use
  Company Number: ES-ABBOTT-06P-144-0339424-00

PATIENT
  Age: 38 Year
  Sex: Female

DRUGS (2)
  1. KLACID UNIDIA [Suspect]
     Indication: TOOTH ABSCESS
     Route: 048
     Dates: start: 20060531, end: 20060531
  2. XUMADOL [Concomitant]
     Indication: DRUG USE FOR UNKNOWN INDICATION
     Route: 048
     Dates: start: 20060529

REACTIONS (2)
  - DYSPNOEA [None]
  - RASH [None]
